FAERS Safety Report 4474733-5 (Version None)
Quarter: 2004Q4

REPORT INFORMATION
  Report Type: 
  Country: None (occurrence: None)
  Receive Date: 20041012
  Receipt Date: 20040924
  Transmission Date: 20050328
  Serious: Yes (Death, Hospitalization)
  Sender: FDA-Public Use
  Company Number: 2004233074KR

PATIENT
  Age: 46 Year
  Sex: Female
  Weight: 54 kg

DRUGS (1)
  1. CELEBREX [Suspect]
     Indication: CANCER PAIN
     Dosage: 200 MG, ORAL
     Route: 048
     Dates: start: 20040608, end: 20040824

REACTIONS (17)
  - ABDOMINAL PAIN [None]
  - ANAEMIA [None]
  - ASTHENIA [None]
  - BACK PAIN [None]
  - FLANK PAIN [None]
  - HAEMATURIA [None]
  - HYDRONEPHROSIS [None]
  - INCISIONAL HERNIA [None]
  - PAIN IN EXTREMITY [None]
  - POLLAKIURIA [None]
  - PRODUCTIVE COUGH [None]
  - PROTEINURIA [None]
  - PULMONARY EMBOLISM [None]
  - RESPIRATORY FAILURE [None]
  - TACHYCARDIA [None]
  - VOMITING [None]
  - WEIGHT INCREASED [None]
